FAERS Safety Report 19803441 (Version 1)
Quarter: 2021Q3

REPORT INFORMATION
  Report Type: Spontaneous
  Country: IL (occurrence: IL)
  Receive Date: 20210908
  Receipt Date: 20210908
  Transmission Date: 20211014
  Serious: Yes (Life-Threatening, Hospitalization, Other)
  Sender: FDA-Public Use
  Company Number: IL-009507513-2109ISR001510

PATIENT
  Age: 73 Year
  Sex: Male

DRUGS (1)
  1. KEYTRUDA [Suspect]
     Active Substance: PEMBROLIZUMAB
     Indication: LUNG CANCER METASTATIC
     Dosage: UNK
     Dates: start: 20200901, end: 2021

REACTIONS (4)
  - Granulocytes maturation arrest [Unknown]
  - Neutropenia [Unknown]
  - Pyrexia [Unknown]
  - Infection susceptibility increased [Unknown]

NARRATIVE: CASE EVENT DATE: 20210811
